FAERS Safety Report 4802795-1 (Version None)
Quarter: 2005Q4

REPORT INFORMATION
  Report Type: 
  Country: None (occurrence: None)
  Receive Date: 20051019
  Receipt Date: 20051006
  Transmission Date: 20060501
  Serious: Yes (Hospitalization)
  Sender: FDA-Public Use
  Company Number: 2005SE05718

PATIENT
  Age: 75 Year
  Sex: Male

DRUGS (2)
  1. METOPROLOL SUCCINATE [Suspect]
     Indication: ATRIAL FIBRILLATION
     Route: 048
     Dates: start: 20050908, end: 20050918
  2. WARAN [Suspect]
     Route: 048
     Dates: start: 20050908, end: 20050918

REACTIONS (1)
  - ANGIONEUROTIC OEDEMA [None]
